FAERS Safety Report 9980341 (Version 2)
Quarter: 2014Q1

REPORT INFORMATION
  Report Type: Spontaneous
  Country: US (occurrence: US)
  Receive Date: 20140307
  Receipt Date: 20140314
  Transmission Date: 20141002
  Serious: Yes (Other)
  Sender: FDA-Public Use
  Company Number: US-009507513-1403USA000103

PATIENT
  Sex: Female

DRUGS (1)
  1. COZAAR [Suspect]
     Dosage: UNK
     Route: 048

REACTIONS (9)
  - Neck surgery [Unknown]
  - Polypectomy [Unknown]
  - Weight decreased [Unknown]
  - Melaena [Unknown]
  - Gastritis [Unknown]
  - Colonoscopy [Unknown]
  - Endoscopy [Unknown]
  - Constipation [Unknown]
  - Abdominal pain [Unknown]
